FAERS Safety Report 16373848 (Version 1)
Quarter: 2019Q2

REPORT INFORMATION
  Report Type: Spontaneous
  Country: ES (occurrence: ES)
  Receive Date: 20190530
  Receipt Date: 20190530
  Transmission Date: 20190711
  Serious: Yes (Hospitalization)
  Sender: FDA-Public Use
  Company Number: ES-TEVA-2019-ES-1056408

PATIENT
  Age: 63 Year
  Sex: Female

DRUGS (2)
  1. OXALIPLATINO TEVA 5 MG/ML CONCENTRADO PARA SOLUCION PARA PERFUSION EFG [Suspect]
     Active Substance: OXALIPLATIN
     Indication: COLON CANCER
     Dosage: 2ND CYCLE, 138MG FOR 1 CYCLICAL
     Route: 042
     Dates: start: 20180905, end: 20180905
  2. OXALIPLATINO TEVA 5 MG/ML CONCENTRADO PARA SOLUCION PARA PERFUSION EFG [Concomitant]
     Active Substance: OXALIPLATIN
     Indication: COLON CANCER
     Dosage: 1ST CYCLE, 138MG FOR 1 CYCLICAL
     Route: 042
     Dates: start: 20180808, end: 20180808

REACTIONS (5)
  - Syncope [Recovered/Resolved]
  - Rash erythematous [Recovered/Resolved]
  - Hypersensitivity [Recovered/Resolved]
  - Hypotension [Recovered/Resolved]
  - Throat irritation [Recovered/Resolved]

NARRATIVE: CASE EVENT DATE: 20180905
